FAERS Safety Report 8282932-X (Version None)
Quarter: 2012Q2

REPORT INFORMATION
  Report Type: 
  Country: None (occurrence: None)
  Receive Date: 20120413
  Receipt Date: 20120330
  Transmission Date: 20120825
  Serious: Yes (Hospitalization)
  Sender: FDA-Public Use
  Company Number: US-ROCHE-1056682

PATIENT
  Sex: Female

DRUGS (2)
  1. VALIUM [Suspect]
     Indication: PRODUCT USED FOR UNKNOWN INDICATION
  2. PLAQUENIL [Concomitant]

REACTIONS (8)
  - HEADACHE [None]
  - MOUTH HAEMORRHAGE [None]
  - CACHEXIA [None]
  - SKIN WRINKLING [None]
  - TENSION [None]
  - THERAPY CESSATION [None]
  - SKIN DISCOLOURATION [None]
  - ALLERGY TO CHEMICALS [None]
